FAERS Safety Report 9319752 (Version 2)
Quarter: 2013Q4

REPORT INFORMATION
  Report Type: Spontaneous
  Country: GB (occurrence: GB)
  Receive Date: 20130530
  Receipt Date: 20131001
  Transmission Date: 20140711
  Serious: Yes (Other)
  Sender: FDA-Public Use
  Company Number: GB-ALLERGAN-1307689US

PATIENT
  Age: 77 Year
  Sex: Male

DRUGS (3)
  1. PREDNISOLONE UNK [Suspect]
     Indication: PRODUCT USED FOR UNKNOWN INDICATION
     Dosage: UNK
     Route: 065
  2. ZYTIGA [Suspect]
     Indication: PRODUCT USED FOR UNKNOWN INDICATION
     Dosage: UNK
     Route: 048
  3. DIABETIC MEDICATIONS [Concomitant]
     Route: 048

REACTIONS (2)
  - Blood glucose decreased [Recovered/Resolved]
  - Hyperglycaemia [Recovered/Resolved]
